FAERS Safety Report 4900947-3 (Version None)
Quarter: 2006Q1

REPORT INFORMATION
  Report Type: 
  Country: None (occurrence: None)
  Receive Date: 20060203
  Receipt Date: 20051004
  Transmission Date: 20060701
  Serious: Yes (Hospitalization, Disabling)
  Sender: FDA-Public Use
  Company Number: US-MERCK-0510USA03123

PATIENT
  Age: 50 Year
  Sex: Female
  Weight: 59 kg

DRUGS (1)
  1. VIOXX [Suspect]
     Indication: ARTHRITIS
     Route: 048
     Dates: start: 19990401, end: 20040401

REACTIONS (9)
  - BACK DISORDER [None]
  - BACK PAIN [None]
  - CARDIAC DISORDER [None]
  - CORONARY ARTERY DISEASE [None]
  - DYSPNOEA [None]
  - DYSPNOEA EXERTIONAL [None]
  - HEPATIC CYST [None]
  - HYPERTENSION [None]
  - MYOCARDIAL INFARCTION [None]
